FAERS Safety Report 11999393 (Version 1)
Quarter: 2016Q1

REPORT INFORMATION
  Report Type: Spontaneous
  Country: None (occurrence: None)
  Receive Date: 20160203
  Receipt Date: 20160203
  Transmission Date: 20160526
  Serious: Yes (Hospitalization)
  Sender: FDA-Public Use
  Company Number: None

PATIENT
  Sex: Female
  Weight: 56.7 kg

DRUGS (34)
  1. XARELTO [Suspect]
     Active Substance: RIVAROXABAN
     Indication: ATRIAL FIBRILLATION
     Dosage: 1 PILL ONCE DAILY MOUTH?
     Route: 048
  2. RED YEAST RICE [Concomitant]
     Active Substance: DIETARY SUPPLEMENT
  3. VIACTIVE (CALCIUM) [Concomitant]
     Active Substance: CALCIUM\VITAMIN D\VITAMIN K5
  4. CHONDROITIN [Concomitant]
     Active Substance: CHONDROITIN
  5. HYALURONIC ACID [Concomitant]
     Active Substance: HYALURONIC ACID
  6. ZINC [Concomitant]
     Active Substance: ZINC\ZINC CHLORIDE
  7. NITROFURANTOIN. [Concomitant]
     Active Substance: NITROFURANTOIN
  8. MILK THISTLE [Concomitant]
     Active Substance: MILK THISTLE
  9. GLUCOSAMIN [Concomitant]
  10. GARLIC. [Concomitant]
     Active Substance: GARLIC
  11. NEXIUM [Concomitant]
     Active Substance: ESOMEPRAZOLE MAGNESIUM
  12. B6 [Concomitant]
     Active Substance: PYRIDOXINE HYDROCHLORIDE
  13. MAGNESIUM [Concomitant]
     Active Substance: MAGNESIUM
  14. L-CARNITINE [Concomitant]
     Active Substance: LEVOCARNITINE
  15. FOLIC ACID. [Concomitant]
     Active Substance: FOLIC ACID
  16. CURCUMIN [Concomitant]
     Active Substance: CURCUMIN
  17. L-ARGININE [Concomitant]
     Active Substance: ARGININE
  18. OXYGEN. [Concomitant]
     Active Substance: OXYGEN
  19. CINNAMON. [Concomitant]
     Active Substance: CINNAMON
  20. ALBUTEROL. [Concomitant]
     Active Substance: ALBUTEROL
  21. POTASSIUM [Concomitant]
     Active Substance: POTASSIUM
  22. TUMERIC [Concomitant]
     Active Substance: TURMERIC
  23. AREDS 2 [Concomitant]
     Active Substance: MINERALS\VITAMINS
  24. ASTAXATHIN [Concomitant]
  25. QUINAL [Concomitant]
  26. XANAX [Concomitant]
     Active Substance: ALPRAZOLAM
  27. ALPHA LIPOIC [Concomitant]
  28. CRANBERRY FRUIT [Concomitant]
  29. NIACIN. [Concomitant]
     Active Substance: NIACIN
  30. GINKO BILOBA [Concomitant]
     Active Substance: GINKGO
  31. METOPROLOL. [Concomitant]
     Active Substance: METOPROLOL
  32. TRIBENZOR [Concomitant]
     Active Substance: AMLODIPINE BESYLATE\HYDROCHLOROTHIAZIDE\OLMESARTAN MEDOXOMIL
  33. VITAMIN B12 [Concomitant]
     Active Substance: CYANOCOBALAMIN
  34. LUTEIN [Concomitant]
     Active Substance: LUTEIN

REACTIONS (6)
  - Atrial fibrillation [None]
  - Intracardiac thrombus [None]
  - Fall [None]
  - Hip fracture [None]
  - Haemorrhage [None]
  - Gastrointestinal ulcer [None]

NARRATIVE: CASE EVENT DATE: 2014
